FAERS Safety Report 15841721 (Version 1)
Quarter: 2019Q1

REPORT INFORMATION
  Report Type: Spontaneous
  Country: FR (occurrence: FR)
  Receive Date: 20190118
  Receipt Date: 20190118
  Transmission Date: 20190417
  Serious: Yes (Death, Hospitalization, Other)
  Sender: FDA-Public Use
  Company Number: FR-AUROBINDO-AUR-APL-2019-000521

PATIENT

DRUGS (14)
  1. VENLAFAXINE [Suspect]
     Active Substance: VENLAFAXINE HYDROCHLORIDE
     Indication: STEM CELL TRANSPLANT
     Dosage: 75 MILLIGRAM, ONCE A DAY
     Route: 048
  2. BRENTUXIMAB VEDOTIN [Suspect]
     Active Substance: BRENTUXIMAB VEDOTIN
     Dosage: 163 MILLIGRAM, UNK
     Route: 065
     Dates: start: 20170123
  3. BRENTUXIMAB VEDOTIN [Suspect]
     Active Substance: BRENTUXIMAB VEDOTIN
     Dosage: 169 MILLIGRAM, UNK
     Route: 065
     Dates: start: 20161212
  4. BRENTUXIMAB VEDOTIN [Suspect]
     Active Substance: BRENTUXIMAB VEDOTIN
     Dosage: 167 MILLIGRAM, UNK
     Route: 065
     Dates: start: 20170102
  5. ZELITREX [Suspect]
     Active Substance: VALACYCLOVIR HYDROCHLORIDE
     Indication: STEM CELL TRANSPLANT
     Dosage: 1 GRAM, ONCE A DAY
     Route: 048
  6. BRENTUXIMAB VEDOTIN [Suspect]
     Active Substance: BRENTUXIMAB VEDOTIN
     Dosage: 103 MILLIGRAM, UNK
     Route: 065
     Dates: start: 20170515, end: 20170515
  7. BRENTUXIMAB VEDOTIN [Suspect]
     Active Substance: BRENTUXIMAB VEDOTIN
     Dosage: 158 MILLIGRAM, UNK
     Route: 065
     Dates: start: 20170102
  8. ORACILLINE                         /00001801/ [Suspect]
     Active Substance: PENICILLIN V
     Indication: STEM CELL TRANSPLANT
     Dosage: UNK
     Route: 048
  9. LEDERFOLINE [Suspect]
     Active Substance: LEUCOVORIN CALCIUM
     Indication: PRODUCT USED FOR UNKNOWN INDICATION
     Dosage: 75 MILLIGRAM EVERY WEEK
     Route: 048
  10. RUXOLITINIB [Suspect]
     Active Substance: RUXOLITINIB
     Indication: STEM CELL TRANSPLANT
     Dosage: 20 MILLIGRAM, ONCE A DAY
     Route: 048
  11. CORTANCYL [Suspect]
     Active Substance: PREDNISONE
     Indication: STEM CELL TRANSPLANT
     Dosage: 22.5 MILLIGRAM, ONCE A DAY
     Route: 048
  12. CICLOSPORIN [Suspect]
     Active Substance: CYCLOSPORINE
     Indication: STEM CELL TRANSPLANT
     Dosage: 60 MILLIGRAM, ONCE A DAY
     Route: 048
  13. BACTRIM [Suspect]
     Active Substance: SULFAMETHOXAZOLE\TRIMETHOPRIM
     Indication: STEM CELL TRANSPLANT
     Dosage: UNK, 3 TIMES A WEEK
     Route: 048
  14. BRENTUXIMAB VEDOTIN [Suspect]
     Active Substance: BRENTUXIMAB VEDOTIN
     Indication: HODGKIN^S DISEASE
     Dosage: 162 MILLIGRAM, UNK
     Route: 065
     Dates: start: 20170213

REACTIONS (18)
  - Neuropathy peripheral [Recovered/Resolved]
  - Aspartate aminotransferase abnormal [Not Recovered/Not Resolved]
  - Nausea [Recovered/Resolved]
  - Cardio-respiratory arrest [Fatal]
  - Alanine aminotransferase abnormal [Not Recovered/Not Resolved]
  - Fatigue [Recovered/Resolved]
  - Disturbance in attention [Unknown]
  - Abnormal behaviour [Unknown]
  - Weight decreased [Unknown]
  - Respiratory depression [Unknown]
  - Laryngeal dyspnoea [Unknown]
  - Thrombocytopenia [Not Recovered/Not Resolved]
  - Escherichia pyelonephritis [Not Recovered/Not Resolved]
  - Off label use [Unknown]
  - Acute kidney injury [Not Recovered/Not Resolved]
  - Progressive multifocal leukoencephalopathy [Fatal]
  - Vomiting [Recovered/Resolved]
  - Gamma-glutamyltransferase abnormal [Not Recovered/Not Resolved]

NARRATIVE: CASE EVENT DATE: 201612
